FAERS Safety Report 12845380 (Version 1)
Quarter: 2016Q4

REPORT INFORMATION
  Report Type: Spontaneous
  Country: US (occurrence: US)
  Receive Date: 20161013
  Receipt Date: 20161013
  Transmission Date: 20170207
  Serious: No
  Sender: FDA-Public Use
  Company Number: US-JAZZ-2016-US-013470

PATIENT
  Sex: Female

DRUGS (13)
  1. THIAMINE HCL [Concomitant]
  2. XYREM [Suspect]
     Active Substance: SODIUM OXYBATE
     Indication: CATAPLEXY
     Dosage: DOSE ADJUSTMENTS
     Route: 048
     Dates: start: 200806, end: 2013
  3. CLOMIPRAMINE HCL [Concomitant]
     Active Substance: CLOMIPRAMINE
  4. ORSYTHIA [Concomitant]
     Active Substance: ETHINYL ESTRADIOL\LEVONORGESTREL
  5. VITAMIN D3 [Concomitant]
     Active Substance: CHOLECALCIFEROL
  6. XYREM [Suspect]
     Active Substance: SODIUM OXYBATE
     Indication: NARCOLEPSY
     Dosage: 2.5 G, BID
     Route: 048
     Dates: start: 200805, end: 200806
  7. XYREM [Suspect]
     Active Substance: SODIUM OXYBATE
     Dosage: 3.75 G, BID
     Route: 048
     Dates: start: 201303
  8. ADDERALL [Concomitant]
     Active Substance: AMPHETAMINE ASPARTATE\AMPHETAMINE SULFATE\DEXTROAMPHETAMINE SACCHARATE\DEXTROAMPHETAMINE SULFATE
  9. MULTIVITAMINS [Concomitant]
     Active Substance: VITAMINS
  10. FALMINA [Concomitant]
     Active Substance: ETHINYL ESTRADIOL\LEVONORGESTREL
  11. RITALIN [Concomitant]
     Active Substance: METHYLPHENIDATE HYDROCHLORIDE
  12. VITAMIN B12 [Concomitant]
     Active Substance: CYANOCOBALAMIN
  13. CLINDAMYCIN. [Concomitant]
     Active Substance: CLINDAMYCIN

REACTIONS (2)
  - Rash [Unknown]
  - Vitamin D deficiency [Recovered/Resolved]

NARRATIVE: CASE EVENT DATE: 2010
